FAERS Safety Report 4528527-2 (Version None)
Quarter: 2004Q4

REPORT INFORMATION
  Report Type: 
  Country: None (occurrence: None)
  Receive Date: 20041216
  Receipt Date: 20040719
  Transmission Date: 20050328
  Serious: No
  Sender: FDA-Public Use
  Company Number: US-BRISTOL-MYERS SQUIBB COMPANY-12644274

PATIENT
  Sex: Female

DRUGS (2)
  1. QUESTRAN [Suspect]
     Indication: IRRITABLE BOWEL SYNDROME
     Route: 048
     Dates: start: 20040717, end: 20040717
  2. QUESTRAN [Suspect]
     Indication: DIARRHOEA
     Route: 048
     Dates: start: 20040717, end: 20040717

REACTIONS (2)
  - ABDOMINAL DISTENSION [None]
  - FLATULENCE [None]
